FAERS Safety Report 9314996 (Version 3)
Quarter: 2014Q2

REPORT INFORMATION
  Report Type: Spontaneous
  Country: IT (occurrence: IT)
  Receive Date: 20130529
  Receipt Date: 20140604
  Transmission Date: 20141212
  Serious: Yes (Hospitalization)
  Sender: FDA-Public Use
  Company Number: IT-TEVA-407271ISR

PATIENT
  Age: 16 Year
  Sex: Female

DRUGS (4)
  1. LORAZEPAM [Suspect]
     Dosage: 17.5 MILLIGRAM DAILY;
     Route: 048
     Dates: start: 20130205, end: 20130205
  2. PAROXETINE [Suspect]
     Dosage: 120 MILLIGRAM DAILY;
     Route: 048
     Dates: start: 20130205, end: 20130205
  3. MOMENT [Suspect]
     Dosage: 1200 MILLIGRAM DAILY; SOFT CAPSULE
     Route: 048
     Dates: start: 20130205, end: 20130205
  4. VALERIANA [Suspect]
     Dosage: MEDICINAL PLANT
     Route: 048
     Dates: start: 20130205, end: 20130205

REACTIONS (4)
  - Confusional state [Not Recovered/Not Resolved]
  - Mydriasis [Not Recovered/Not Resolved]
  - Slow speech [Not Recovered/Not Resolved]
  - Drug abuse [Not Recovered/Not Resolved]
